FAERS Safety Report 6765992-4 (Version None)
Quarter: 2010Q2

REPORT INFORMATION
  Report Type: 
  Country: None (occurrence: None)
  Receive Date: 20100611
  Receipt Date: 20100604
  Transmission Date: 20101027
  Serious: Yes (Hospitalization)
  Sender: FDA-Public Use
  Company Number: A0787070A

PATIENT
  Age: 52 Year
  Sex: Female
  Weight: 98.6 kg

DRUGS (11)
  1. AVANDIA [Suspect]
     Indication: DIABETES MELLITUS
     Dosage: 8MG PER DAY
     Route: 048
     Dates: start: 20061005, end: 20070719
  2. LISINOPRIL [Concomitant]
  3. LASIX [Concomitant]
  4. TRICOR [Concomitant]
  5. AMARYL [Concomitant]
  6. NEURONTIN [Concomitant]
  7. LORCET-HD [Concomitant]
  8. ZETIA [Concomitant]
  9. CYMBALTA [Concomitant]
  10. LOPRESSOR [Concomitant]
  11. AMARYL [Concomitant]

REACTIONS (3)
  - CARDIAC DISORDER [None]
  - CORONARY ARTERY STENOSIS [None]
  - MYOCARDIAL INFARCTION [None]
